FAERS Safety Report 15360741 (Version 6)
Quarter: 2019Q1

REPORT INFORMATION
  Report Type: Report from Study
  Country: DE (occurrence: DE)
  Receive Date: 20180907
  Receipt Date: 20190117
  Transmission Date: 20190417
  Serious: Yes (Death, Disabling, Congenital Anomaly, Other)
  Sender: FDA-Public Use
  Company Number: DE-TORRENT-00009759

PATIENT

DRUGS (21)
  1. CLEXANE [Suspect]
     Active Substance: ENOXAPARIN SODIUM
     Indication: PRODUCT USED FOR UNKNOWN INDICATION
     Dosage: EXPOSURE DURATION: 0-14 WEEKS
     Route: 064
  2. XARELTO [Suspect]
     Active Substance: RIVAROXABAN
     Indication: PRODUCT USED FOR UNKNOWN INDICATION
     Dosage: FROM GESTATIONAL WEEK 0-5
     Route: 064
  3. MIFEGYNE [Concomitant]
     Active Substance: MIFEPRISTONE
     Indication: ABORTION INDUCED
     Dosage: UNK; 13.6 GESTATIONAL WEEK
     Route: 064
     Dates: start: 20120320, end: 20120320
  4. HEPARIN [Suspect]
     Active Substance: HEPARIN SODIUM
     Indication: PRODUCT USED FOR UNKNOWN INDICATION
     Dosage: UNKNOWN
     Route: 064
  5. ALISKIREN [Suspect]
     Active Substance: ALISKIREN
     Indication: PRODUCT USED FOR UNKNOWN INDICATION
     Dosage: 300 [MG/D]; 0-4.6 GESTATIONAL WEEK
     Route: 064
     Dates: start: 20111214, end: 20120117
  6. METAMIZOLE [Suspect]
     Active Substance: METAMIZOLE
     Indication: PRODUCT USED FOR UNKNOWN INDICATION
     Dosage: FROM GESTATIONAL WEEK 0-14
     Route: 064
  7. RAMIPRIL. [Suspect]
     Active Substance: RAMIPRIL
     Indication: PRODUCT USED FOR UNKNOWN INDICATION
     Dosage: 20 MG PER DAY, EXPOSURE DURATION: 0-113+6 WEEKS / MATERNAL DOSE 20 MG, UNKNOWN
     Route: 064
     Dates: start: 20111214, end: 20120320
  8. TORASEMIDE [Suspect]
     Active Substance: TORSEMIDE
     Indication: PRODUCT USED FOR UNKNOWN INDICATION
     Dosage: FROM GESTATIONAL WEEK 0-14
     Route: 064
     Dates: start: 20111214, end: 20120320
  9. RITUXIMAB. [Suspect]
     Active Substance: RITUXIMAB
     Indication: PRODUCT USED FOR UNKNOWN INDICATION
     Dosage: UNK, LAST TIME IN DECEMBER 2011: PRE OR PERICONCEPTIONAL
     Route: 064
  10. SIMVASTATIN. [Suspect]
     Active Substance: SIMVASTATIN
     Indication: PRODUCT USED FOR UNKNOWN INDICATION
     Dosage: FROM GESTATIONAL WEEK 0-14
     Route: 064
  11. ASPIRIN. [Suspect]
     Active Substance: ASPIRIN
     Indication: PRODUCT USED FOR UNKNOWN INDICATION
     Dosage: FROM GESTATIONAL WEEK 0-14
     Route: 064
     Dates: start: 20111214, end: 20120320
  12. CYTOTEC [Concomitant]
     Active Substance: MISOPROSTOL
     Indication: ABORTION INDUCED
     Dosage: UNK; 13.6 GESTATIONAL WEEK
     Route: 064
     Dates: start: 20120320, end: 20120320
  13. ENOXAPARIN SODIUM. [Suspect]
     Active Substance: ENOXAPARIN SODIUM
     Indication: PRODUCT USED FOR UNKNOWN INDICATION
     Dosage: FROM GESTATIONAL WEEK 0-14
     Route: 064
  14. EZETIMIBE. [Suspect]
     Active Substance: EZETIMIBE
     Indication: PRODUCT USED FOR UNKNOWN INDICATION
     Dosage: FROM GESTATIONAL WEEK 0-14
     Route: 064
  15. PANTOPRAZOLE [Suspect]
     Active Substance: PANTOPRAZOLE
     Indication: PRODUCT USED FOR UNKNOWN INDICATION
     Dosage: 40 [MG/D]; 0-13.6 GESTATIONAL WEEK
     Route: 064
     Dates: start: 20111214, end: 20120320
  16. SALBUTAMOL [Suspect]
     Active Substance: ALBUTEROL
     Indication: PRODUCT USED FOR UNKNOWN INDICATION
     Dosage: FROM GESTATIONAL WEEK 0-14
     Route: 064
  17. TACROLIMUS. [Suspect]
     Active Substance: TACROLIMUS
     Indication: PRODUCT USED FOR UNKNOWN INDICATION
     Dosage: FROM GESTATIONAL WEEK 0-14
     Route: 064
     Dates: start: 20111214, end: 20120320
  18. DALTEPARIN SODIUM [Suspect]
     Active Substance: DALTEPARIN SODIUM
     Indication: PRODUCT USED FOR UNKNOWN INDICATION
     Dosage: UNKNOWN
     Route: 064
  19. HYDROXYCHLOROQUINE [Suspect]
     Active Substance: HYDROXYCHLOROQUINE
     Indication: PRODUCT USED FOR UNKNOWN INDICATION
     Dosage: FROM GESTATIONAL WEEK 0-14
     Route: 064
     Dates: start: 20120320
  20. NICOTINE. [Suspect]
     Active Substance: NICOTINE
     Indication: PRODUCT USED FOR UNKNOWN INDICATION
     Dosage: FROM GESTATIONAL WEEK 0-14
     Route: 064
  21. PREDNISOLONE. [Suspect]
     Active Substance: PREDNISOLONE
     Indication: PRODUCT USED FOR UNKNOWN INDICATION
     Dosage: FROM GESTATIONAL WEEK 0-14
     Route: 064
     Dates: start: 20111214, end: 20120320

REACTIONS (8)
  - Truncus arteriosus persistent [Fatal]
  - Heart disease congenital [Fatal]
  - Ventricular septal defect [Fatal]
  - Congenital cardiovascular anomaly [Fatal]
  - Foetal exposure during pregnancy [Fatal]
  - Low birth weight baby [Unknown]
  - Cardiac septal defect [Fatal]
  - Premature baby [Unknown]
